FAERS Safety Report 19001001 (Version 1)
Quarter: 2021Q1

REPORT INFORMATION
  Report Type: Spontaneous
  Country: US (occurrence: US)
  Receive Date: 20210311
  Receipt Date: 20210311
  Transmission Date: 20210420
  Serious: No
  Sender: FDA-Public Use
  Company Number: US-GLENMARK PHARMACEUTICALS-2020GMK049098

PATIENT

DRUGS (1)
  1. PIRNUO [Suspect]
     Active Substance: MUPIROCIN CALCIUM
     Indication: SYSTEMIC SCLERODERMA
     Dosage: UNK
     Route: 061

REACTIONS (1)
  - Product use in unapproved indication [Unknown]
